FAERS Safety Report 7909547-4 (Version None)
Quarter: 2011Q4

REPORT INFORMATION
  Report Type: 
  Country: None (occurrence: None)
  Receive Date: 20111111
  Receipt Date: 20111102
  Transmission Date: 20120403
  Serious: No
  Sender: FDA-Public Use
  Company Number: US-JNJFOC-20111101445

PATIENT
  Sex: Female

DRUGS (2)
  1. PROVERA [Concomitant]
     Indication: CONTRACEPTION
     Route: 065
  2. INVEGA SUSTENNA [Suspect]
     Indication: SCHIZOPHRENIA
     Route: 030
     Dates: start: 20110601

REACTIONS (2)
  - MUSCLE RIGIDITY [None]
  - SWOLLEN TONGUE [None]
